FAERS Safety Report 11688248 (Version 2)
Quarter: 2015Q4

REPORT INFORMATION
  Report Type: Spontaneous
  Country: US (occurrence: US)
  Receive Date: 20151030
  Receipt Date: 20151228
  Transmission Date: 20160304
  Serious: No
  Sender: FDA-Public Use
  Company Number: US-ASTRAZENECA-2015SF01711

PATIENT
  Sex: Female

DRUGS (13)
  1. CARVEDILOL. [Concomitant]
     Active Substance: CARVEDILOL
     Indication: BLOOD PRESSURE MEASUREMENT
     Dosage: 12.5
     Route: 048
  2. ZOCORT [Concomitant]
     Indication: BLOOD CHOLESTEROL ABNORMAL
     Route: 048
  3. LOSARTAN. [Concomitant]
     Active Substance: LOSARTAN
     Indication: CARDIAC DISORDER
     Route: 048
     Dates: start: 2013
  4. POTASSIUM [Concomitant]
     Active Substance: POTASSIUM
     Route: 048
  5. POLYETHYLENE GLYCOL [Concomitant]
     Active Substance: POLYETHYLENE GLYCOLS
     Indication: DIARRHOEA
     Route: 048
     Dates: start: 2015
  6. LORAZEPAM. [Concomitant]
     Active Substance: LORAZEPAM
     Indication: NERVOUSNESS
     Route: 048
  7. PROAIR HFA [Concomitant]
     Active Substance: ALBUTEROL SULFATE
     Route: 055
     Dates: start: 2011
  8. PLAVIX [Concomitant]
     Active Substance: CLOPIDOGREL BISULFATE
     Route: 048
     Dates: start: 2013
  9. IMIPRAMINE [Concomitant]
     Active Substance: IMIPRAMINE
     Indication: GRIEF REACTION
     Route: 048
     Dates: start: 201504
  10. ISOSORBIDE MONONITRATE. [Concomitant]
     Active Substance: ISOSORBIDE MONONITRATE
     Indication: CARDIAC DISORDER
     Route: 048
     Dates: start: 2013
  11. BABY ASPIRIN [Concomitant]
     Active Substance: ASPIRIN
     Indication: ANTICOAGULANT THERAPY
     Route: 048
  12. ALBUTEROL. [Concomitant]
     Active Substance: ALBUTEROL
     Indication: DYSPNOEA
     Dosage: EVERY 5 TO 6 HOURS AS NEEDED USUALLY BY 4 HOUR SHE NEEDS IT AND IT DEPENDS ON THE HUMIDITY
     Route: 056
     Dates: start: 2011
  13. SYMBICORT [Suspect]
     Active Substance: BUDESONIDE\FORMOTEROL FUMARATE DIHYDRATE
     Indication: CHRONIC OBSTRUCTIVE PULMONARY DISEASE
     Dosage: 160/4.5  2 PUFFS TWICE DAILY
     Route: 055
     Dates: start: 201410

REACTIONS (23)
  - Mental disorder [Unknown]
  - Injury [Unknown]
  - Back disorder [Unknown]
  - Dyspnoea [Unknown]
  - Eye disorder [Unknown]
  - Local swelling [Unknown]
  - Fall [Unknown]
  - Back pain [Unknown]
  - Concussion [Unknown]
  - Wheezing [Unknown]
  - Musculoskeletal discomfort [Unknown]
  - Feeling abnormal [Unknown]
  - Haemorrhage [Unknown]
  - Anxiety [Unknown]
  - Dry mouth [Unknown]
  - Oral candidiasis [Unknown]
  - Grief reaction [Unknown]
  - Weight increased [Unknown]
  - Cushing^s syndrome [Unknown]
  - Oral fungal infection [Unknown]
  - Peripheral swelling [Unknown]
  - Pain in extremity [Unknown]
  - Erythema [Unknown]
